FAERS Safety Report 18886574 (Version 1)
Quarter: 2021Q1

REPORT INFORMATION
  Report Type: Spontaneous
  Country: FR (occurrence: FR)
  Receive Date: 20210212
  Receipt Date: 20210212
  Transmission Date: 20210420
  Serious: Yes (Other)
  Sender: FDA-Public Use
  Company Number: FR-TAKEDA-2021TUS008464

PATIENT
  Age: 53 Year
  Sex: Female

DRUGS (14)
  1. VELCADE [Suspect]
     Active Substance: BORTEZOMIB
     Indication: PLASMA CELL MYELOMA
     Dosage: 1.3 MILLIGRAM/SQ. METER, 1/WEEK
     Route: 058
  2. MELPHALAN. [Suspect]
     Active Substance: MELPHALAN
     Indication: PLASMA CELL MYELOMA
  3. DEXAMETHASONE. [Suspect]
     Active Substance: DEXAMETHASONE
     Indication: BONE LESION
     Dosage: 40 MILLIGRAM
     Route: 048
  4. DEXAMETHASONE. [Suspect]
     Active Substance: DEXAMETHASONE
     Indication: PLASMA CELL MYELOMA
  5. PLERIXAFOR [Suspect]
     Active Substance: PLERIXAFOR
     Indication: PLASMA CELL MYELOMA
  6. FILGRASTIM [Suspect]
     Active Substance: FILGRASTIM
     Indication: PLASMA CELL MYELOMA
  7. THALIDOMIDE [Suspect]
     Active Substance: THALIDOMIDE
     Indication: BONE LESION
     Dosage: 100 MILLIGRAM, QD
     Route: 065
  8. PLERIXAFOR [Suspect]
     Active Substance: PLERIXAFOR
     Indication: BONE LESION
     Dosage: 16 MILLIGRAM
     Route: 065
  9. FILGRASTIM [Suspect]
     Active Substance: FILGRASTIM
     Indication: BONE LESION
     Dosage: 10 MICROGRAM/KILOGRAM
     Route: 065
  10. VELCADE [Suspect]
     Active Substance: BORTEZOMIB
     Indication: BONE LESION
  11. MELPHALAN. [Suspect]
     Active Substance: MELPHALAN
     Indication: BONE LESION
     Dosage: 200 MILLIGRAM/SQ. METER
     Route: 065
  12. CYCLOPHOSPHAMIDE. [Suspect]
     Active Substance: CYCLOPHOSPHAMIDE
     Indication: PLASMA CELL MYELOMA
  13. THALIDOMIDE [Suspect]
     Active Substance: THALIDOMIDE
     Indication: PLASMA CELL MYELOMA
  14. CYCLOPHOSPHAMIDE. [Suspect]
     Active Substance: CYCLOPHOSPHAMIDE
     Indication: BONE LESION
     Dosage: 300 MILLIGRAM/SQ. METER, 1/WEEK
     Route: 065

REACTIONS (3)
  - Myelodysplastic syndrome [Recovering/Resolving]
  - Hepatitis [Unknown]
  - Vanishing bile duct syndrome [Unknown]
